FAERS Safety Report 6241168-4 (Version None)
Quarter: 2009Q2

REPORT INFORMATION
  Report Type: 
  Country: None (occurrence: None)
  Receive Date: 20090619
  Receipt Date: 20090619
  Transmission Date: 20091009
  Serious: No
  Sender: FDA-Public Use
  Company Number: None

PATIENT
  Age: 45 Year
  Sex: Female
  Weight: 55.7924 kg

DRUGS (1)
  1. ZICAM NASAL GEL BOTTLE SENT TO LANIER LAW FIRM MATTRIX [Suspect]
     Indication: PROPHYLAXIS
     Dosage: ONE SQUIRT ONE APPLICATION NASAL
     Route: 045
     Dates: start: 20070919, end: 20070919

REACTIONS (5)
  - AGEUSIA [None]
  - ANOSMIA [None]
  - NASAL DISCOMFORT [None]
  - PAIN [None]
  - WEIGHT DECREASED [None]
